FAERS Safety Report 14312368 (Version 1)
Quarter: 2017Q4

REPORT INFORMATION
  Report Type: Spontaneous
  Country: GR (occurrence: GR)
  Receive Date: 20171221
  Receipt Date: 20171221
  Transmission Date: 20180321
  Serious: Yes (Other)
  Sender: FDA-Public Use
  Company Number: PHHY2017GR185690

PATIENT
  Age: 65 Year
  Sex: Male

DRUGS (1)
  1. CICLOSPORIN [Suspect]
     Active Substance: CYCLOSPORINE
     Indication: ACUTE MYELOID LEUKAEMIA
     Route: 065

REACTIONS (5)
  - Trisomy 8 [Unknown]
  - Drug ineffective [Unknown]
  - Neutropenia [Unknown]
  - Osteomyelitis [Unknown]
  - Macrocytosis [Unknown]
